FAERS Safety Report 5213079-4 (Version None)
Quarter: 2007Q1

REPORT INFORMATION
  Report Type: 
  Country: None (occurrence: None)
  Receive Date: 20070119
  Receipt Date: 20070109
  Transmission Date: 20070707
  Serious: Yes (Other)
  Sender: FDA-Public Use
  Company Number: HQWYE968110JAN07

PATIENT
  Age: 33 Year
  Sex: Male

DRUGS (1)
  1. ENBREL [Suspect]
     Indication: JUVENILE ARTHRITIS
     Route: 065

REACTIONS (1)
  - CARDIAC FAILURE [None]
